FAERS Safety Report 14951592 (Version 3)
Quarter: 2018Q2

REPORT INFORMATION
  Report Type: Spontaneous
  Country: FR (occurrence: FR)
  Receive Date: 20180530
  Receipt Date: 20180620
  Transmission Date: 20180711
  Serious: Yes (Other)
  Sender: FDA-Public Use
  Company Number: FR-TEVA-2018-FR-898293

PATIENT
  Age: 54 Year
  Sex: Female

DRUGS (8)
  1. PRAMIPEXOLE. [Concomitant]
     Active Substance: PRAMIPEXOLE
  2. BACLOFEN. [Concomitant]
     Active Substance: BACLOFEN
  3. KENZEN [Concomitant]
     Active Substance: CANDESARTAN
  4. FAMPYRA [Concomitant]
     Active Substance: DALFAMPRIDINE
  5. DETENSIEL [Concomitant]
     Active Substance: BISOPROLOL FUMARATE
  6. COPAXONE [Suspect]
     Active Substance: GLATIRAMER ACETATE
     Dosage: UNKNOWN FORM OF STRENGTH
     Route: 065
     Dates: start: 20180516, end: 2018
  7. FEMARA [Concomitant]
     Active Substance: LETROZOLE
  8. NEURONTIN [Concomitant]
     Active Substance: GABAPENTIN

REACTIONS (12)
  - Feeling cold [Unknown]
  - Fall [Unknown]
  - Asthenia [Unknown]
  - Dysstasia [Unknown]
  - Tremor [Recovering/Resolving]
  - Gait disturbance [Unknown]
  - Musculoskeletal stiffness [Unknown]
  - Chills [Recovering/Resolving]
  - Headache [Unknown]
  - Fatigue [Unknown]
  - Paraesthesia [Unknown]
  - Body temperature increased [Unknown]

NARRATIVE: CASE EVENT DATE: 20180523
